FAERS Safety Report 10493801 (Version 1)
Quarter: 2014Q4

REPORT INFORMATION
  Report Type: Spontaneous
  Country: US (occurrence: MX)
  Receive Date: 20141003
  Receipt Date: 20141003
  Transmission Date: 20150528
  Serious: Yes (Other)
  Sender: FDA-Public Use
  Company Number: US-JNJCP-30000208294

PATIENT
  Age: 46 Year
  Sex: Female

DRUGS (1)
  1. NEUTROGENA PRODUCTS [Suspect]
     Active Substance: UNSPECIFIED INGREDIENT
     Indication: PROPHYLAXIS
     Route: 061

REACTIONS (6)
  - Melanocytic naevus [Unknown]
  - Melanocytic naevus [Not Recovered/Not Resolved]
  - Sunburn [Unknown]
  - Skin cancer [Unknown]
  - Chemical injury [Unknown]
  - Application site vesicles [Not Recovered/Not Resolved]
